FAERS Safety Report 11184275 (Version 1)
Quarter: 2015Q2

REPORT INFORMATION
  Report Type: Report from Study
  Country: US (occurrence: US)
  Receive Date: 20150612
  Receipt Date: 20150612
  Transmission Date: 20150821
  Serious: Yes (Other)
  Sender: FDA-Public Use
  Company Number: US-AMGEN-USASL2015056666

PATIENT
  Age: 64 Year
  Sex: Male

DRUGS (8)
  1. KYPROLIS [Suspect]
     Active Substance: CARFILZOMIB
     Indication: PLASMA CELL MYELOMA
     Dosage: UNK, 2 TIMES/WK
     Route: 042
     Dates: start: 20140829
  2. DEXAMETHASONE. [Suspect]
     Active Substance: DEXAMETHASONE
     Indication: PLASMA CELL MYELOMA
  3. B COMPLEX                          /06817001/ [Concomitant]
     Dosage: UNK
  4. DEXAMETHASONE. [Suspect]
     Active Substance: DEXAMETHASONE
     Indication: PERIPHERAL SWELLING
     Dosage: 16 MG EVERY TUESDAY
     Route: 065
  5. VITAMIN D                          /00107901/ [Concomitant]
     Active Substance: ERGOCALCIFEROL
     Dosage: UNK
  6. ZOMETA [Concomitant]
     Active Substance: ZOLEDRONIC ACID
     Dosage: UNK
  7. PROTONIX                           /00661201/ [Concomitant]
     Indication: GASTROOESOPHAGEAL REFLUX DISEASE
     Dosage: UNK
  8. DICLOFENAC [Concomitant]
     Active Substance: DICLOFENAC
     Indication: ARTHRITIS
     Dosage: UNK

REACTIONS (30)
  - Memory impairment [Unknown]
  - Learning disorder [Unknown]
  - Joint swelling [Unknown]
  - Somnolence [Unknown]
  - Fracture [Unknown]
  - Feeling abnormal [Unknown]
  - Condition aggravated [Not Recovered/Not Resolved]
  - Muscle spasms [Unknown]
  - Thrombosis [Unknown]
  - Gait disturbance [Unknown]
  - Lower limb fracture [Unknown]
  - Injection site pain [Unknown]
  - Headache [Unknown]
  - Platelet count decreased [Unknown]
  - Spinal fracture [Unknown]
  - Peripheral swelling [Unknown]
  - Increased tendency to bruise [Not Recovered/Not Resolved]
  - Hypoaesthesia [Unknown]
  - Insomnia [Unknown]
  - Parosmia [Not Recovered/Not Resolved]
  - Balance disorder [Not Recovered/Not Resolved]
  - Fall [Unknown]
  - Head injury [Unknown]
  - Dyspnoea [Not Recovered/Not Resolved]
  - Paraesthesia [Unknown]
  - Injection site infection [Unknown]
  - Fatigue [Not Recovered/Not Resolved]
  - Deafness [Unknown]
  - Hypogeusia [Not Recovered/Not Resolved]
  - Back disorder [Unknown]

NARRATIVE: CASE EVENT DATE: 2014
